FAERS Safety Report 5714132-9 (Version None)
Quarter: 2008Q2

REPORT INFORMATION
  Report Type: 
  Country: None (occurrence: None)
  Receive Date: 20080423
  Receipt Date: 20080410
  Transmission Date: 20081010
  Serious: Yes (Other)
  Sender: FDA-Public Use
  Company Number: CHPA2008US06858

PATIENT
  Age: 25 Year
  Sex: Female

DRUGS (1)
  1. LAMISIL AT CREAM UNKNOWN AF OR JI (NCH) [Suspect]
     Indication: TINEA PEDIS
     Dosage: UNK, BID
     Route: 061

REACTIONS (2)
  - CELLULITIS [None]
  - HYPERSENSITIVITY [None]
